FAERS Safety Report 6668756-5 (Version None)
Quarter: 2010Q2

REPORT INFORMATION
  Report Type: 
  Country: None (occurrence: None)
  Receive Date: 20100401
  Receipt Date: 20100324
  Transmission Date: 20101027
  Serious: Yes (Disabling)
  Sender: FDA-Public Use
  Company Number: 2010-00375

PATIENT
  Age: 54 Year
  Sex: Female

DRUGS (3)
  1. SIMVASTATIN [Suspect]
     Indication: LIPIDS INCREASED
     Dosage: 40 MG, ORAL
     Route: 048
     Dates: end: 20100216
  2. LEVOTHYROXINE [Concomitant]
  3. PAROXETINE HYDROCHLORIDE+PAROXETINE HYDROCHLORIDE HEMIHYDRATE (SEROXAT [Concomitant]

REACTIONS (2)
  - DEPRESSED MOOD [None]
  - MEMORY IMPAIRMENT [None]
